FAERS Safety Report 5496832-1 (Version None)
Quarter: 2007Q4

REPORT INFORMATION
  Report Type: 
  Country: None (occurrence: None)
  Receive Date: 20071025
  Receipt Date: 20070822
  Transmission Date: 20080405
  Serious: No
  Sender: FDA-Public Use
  Company Number: A0674772A

PATIENT
  Age: 6 Year
  Sex: Male

DRUGS (2)
  1. ADVAIR DISKUS 100/50 [Suspect]
     Indication: ASTHMA
     Route: 045
  2. UNSPECIFIED INHALER [Concomitant]
     Route: 055

REACTIONS (2)
  - COUGH [None]
  - DRUG INEFFECTIVE [None]
